FAERS Safety Report 13229014 (Version 4)
Quarter: 2020Q1

REPORT INFORMATION
  Report Type: Report from Study
  Country: ES (occurrence: ES)
  Receive Date: 20170213
  Receipt Date: 20200320
  Transmission Date: 20200409
  Serious: Yes (Life-Threatening, Other)
  Sender: FDA-Public Use
  Company Number: ES-AMGEN-ESPCT2015129631

PATIENT
  Age: 12 Year
  Sex: Female
  Weight: 51.8 kg

DRUGS (14)
  1. METHOTREXATE. [Suspect]
     Active Substance: METHOTREXATE
     Indication: ACUTE LYMPHOCYTIC LEUKAEMIA
     Dosage: 15.6 MILLIGRAM, PER CHEMO REGIM
     Route: 065
     Dates: start: 20151207
  2. CARFILZOMIB [Suspect]
     Active Substance: CARFILZOMIB
     Indication: ACUTE LYMPHOCYTIC LEUKAEMIA
     Dosage: 42.1 MILLIGRAM, PER CHEMO REGIM
     Route: 042
     Dates: start: 20151130, end: 20151208
  3. ONDANSETRON [Concomitant]
     Active Substance: ONDANSETRON
     Dosage: 8 MILLIGRAM
     Route: 042
     Dates: start: 20151125, end: 20160108
  4. PARACETAMOL [Concomitant]
     Active Substance: ACETAMINOPHEN
     Dosage: 750 MILLIGRAM
     Route: 048
     Dates: start: 20151201, end: 20151227
  5. GLUCOSALINE [Concomitant]
     Dosage: 500 MILLILITER
     Route: 042
     Dates: start: 20151124, end: 20160109
  6. CEFEPIME [Concomitant]
     Active Substance: CEFEPIME HYDROCHLORIDE
     Dosage: 2 GRAM
     Route: 042
     Dates: start: 20151129, end: 20151225
  7. METAMIZOL [Concomitant]
     Active Substance: METAMIZOLE SODIUM
     Dosage: 2 GRAM
     Route: 048
     Dates: start: 20151124, end: 20160108
  8. ETINILESTRADIOL [Concomitant]
     Dosage: 5 MILLIGRAM
     Route: 048
     Dates: start: 20150723, end: 20151203
  9. ZOFRAN [Concomitant]
     Active Substance: ONDANSETRON HYDROCHLORIDE
     Dosage: 8 MILLIGRAM
     Route: 042
     Dates: start: 20151125, end: 20151206
  10. FUROSEMIDE. [Concomitant]
     Active Substance: FUROSEMIDE
     Dosage: 20- 350 MILLIGRAM
     Route: 042
     Dates: start: 20151126, end: 20160108
  11. SEGURIL [Concomitant]
     Active Substance: FUROSEMIDE
     Dosage: 20 MILLIGRAM
     Route: 042
     Dates: start: 20151130, end: 20151204
  12. MITOXANTRONE [Suspect]
     Active Substance: MITOXANTRONE HYDROCHLORIDE
     Indication: ACUTE LYMPHOCYTIC LEUKAEMIA
     Dosage: 15.6 MILLIGRAM, PER CHEMO REGIM
     Route: 065
     Dates: start: 20151207
  13. DEXAMETHASONE. [Suspect]
     Active Substance: DEXAMETHASONE
     Indication: ACUTE LYMPHOCYTIC LEUKAEMIA
     Dosage: 5-15.5 MILLIGRAM, PER CHEMO REGIM
     Route: 042
     Dates: start: 20151130
  14. VINCRISTINE [Suspect]
     Active Substance: VINCRISTINE
     Indication: ACUTE LYMPHOCYTIC LEUKAEMIA
     Dosage: 2 MILLIGRAM, PER CHEMO REGIM
     Route: 065
     Dates: start: 20151216

REACTIONS (3)
  - Sepsis [Recovered/Resolved]
  - Haemolytic uraemic syndrome [Recovered/Resolved]
  - Respiratory failure [Recovered/Resolved]

NARRATIVE: CASE EVENT DATE: 20151202
